FAERS Safety Report 9452539 (Version 1)
Quarter: 2013Q3

REPORT INFORMATION
  Report Type: Spontaneous
  Country: US (occurrence: None)
  Receive Date: 20130808
  Receipt Date: 20130808
  Transmission Date: 20140515
  Serious: No
  Sender: FDA-Public Use
  Company Number: None

PATIENT
  Age: 59 Year
  Sex: Male

DRUGS (1)
  1. GELNIQUE [Suspect]
     Indication: POLLAKIURIA
     Dosage: GIVEN INTO/UNDER THE SKIN
     Dates: start: 20110513, end: 20130701

REACTIONS (3)
  - Application site pain [None]
  - Application site reaction [None]
  - Musculoskeletal stiffness [None]
